FAERS Safety Report 8763473 (Version 3)
Quarter: 2012Q4

REPORT INFORMATION
  Report Type: Report from Study
  Country: DE (occurrence: DE)
  Receive Date: 20120831
  Receipt Date: 20121213
  Transmission Date: 20130627
  Serious: Yes (Life-Threatening, Hospitalization, Other)
  Sender: FDA-Public Use
  Company Number: DE-BIOGENIDEC-2012BI033797

PATIENT
  Age: 36 Year
  Sex: Female
  Weight: 66 kg

DRUGS (8)
  1. TYSABRI [Suspect]
     Indication: RELAPSING-REMITTING MULTIPLE SCLEROSIS
     Route: 042
     Dates: start: 20120601, end: 20120727
  2. EMSELEX [Concomitant]
     Indication: BLADDER DYSFUNCTION
     Dates: start: 20071130
  3. KATADOLON [Concomitant]
     Indication: PRODUCT USED FOR UNKNOWN INDICATION
     Dates: start: 20120531
  4. KATADOLON [Concomitant]
     Indication: PRODUCT USED FOR UNKNOWN INDICATION
     Dates: start: 201208, end: 20120817
  5. CERAZETTE [Concomitant]
     Indication: CONTRACEPTION
     Dates: start: 201206
  6. TOPINAMAT ACTAVIS [Concomitant]
     Indication: MIGRAINE
     Dates: start: 201004
  7. MAXALL LINGUA [Concomitant]
     Indication: MIGRAINE
     Dates: start: 201001
  8. AMITRIPTYLIN [Concomitant]
     Indication: PRODUCT USED FOR UNKNOWN INDICATION
     Dates: start: 201101

REACTIONS (4)
  - Acute hepatic failure [Not Recovered/Not Resolved]
  - Hepatic encephalopathy [Not Recovered/Not Resolved]
  - Vertigo positional [Not Recovered/Not Resolved]
  - Cholelithiasis [Not Recovered/Not Resolved]
